FAERS Safety Report 7023507-X (Version None)
Quarter: 2010Q3

REPORT INFORMATION
  Report Type: 
  Country: None (occurrence: None)
  Receive Date: 20100929
  Receipt Date: 20100929
  Transmission Date: 20110219
  Serious: Yes (Death)
  Sender: FDA-Public Use
  Company Number: None

PATIENT
  Sex: Male

DRUGS (1)
  1. AVANDAMET [Suspect]
     Indication: DIABETES MELLITUS
     Dosage: 1 TABLET EVERY MORNING PO; 1/2 TABLET EVERY EVENING PO
     Route: 048
     Dates: start: 20100101, end: 20100921

REACTIONS (2)
  - CARDIO-RESPIRATORY ARREST [None]
  - FALL [None]
